FAERS Safety Report 22943344 (Version 2)
Quarter: 2023Q4

REPORT INFORMATION
  Report Type: Spontaneous
  Country: IT (occurrence: None)
  Receive Date: 20230914
  Receipt Date: 20231014
  Transmission Date: 20240109
  Serious: Yes (Other)
  Sender: FDA-Public Use
  Company Number: IT-ROCHE-3420491

PATIENT
  Age: 73 Year
  Sex: Male

DRUGS (14)
  1. ALECENSA [Suspect]
     Active Substance: ALECTINIB HYDROCHLORIDE
     Indication: Lung neoplasm malignant
     Dosage: 4 TABLETS IN THE MORNING, 4 TABLETS IN THE EVENING
     Route: 048
     Dates: start: 20230724
  2. ALECENSA [Suspect]
     Active Substance: ALECTINIB HYDROCHLORIDE
     Indication: Lung neoplasm
  3. FUROSEMIDE [Concomitant]
     Active Substance: FUROSEMIDE
     Dosage: 1 TABLET IN THE MORNING, 1 TABLET IN THE EVENING
     Route: 048
  4. KCL [Concomitant]
     Active Substance: POTASSIUM CHLORIDE
     Dosage: 1 TABLET
  5. FENTANYL [Concomitant]
     Active Substance: FENTANYL
     Dosage: 50 MCG
  6. TACHIPIRINA [Concomitant]
     Active Substance: ACETAMINOPHEN
     Dosage: 1 TABLET IN THE MORNING,1 TABLET IN THE EVENING
     Route: 048
  7. OMEPRAZOLE [Concomitant]
     Active Substance: OMEPRAZOLE
     Dosage: 1 TABLET.
     Route: 048
  8. ATENOLOL [Concomitant]
     Active Substance: ATENOLOL
     Dosage: 1/2 TABLET
     Route: 048
  9. METFORMIN [Concomitant]
     Active Substance: METFORMIN HYDROCHLORIDE
     Dosage: 1 TABLET IN THE MORNING
     Route: 048
  10. ASPIRIN [Concomitant]
     Active Substance: ASPIRIN
     Dosage: 1 TABLET
     Route: 048
  11. TAMSULOSIN HYDROCHLORIDE [Concomitant]
     Active Substance: TAMSULOSIN HYDROCHLORIDE
     Dosage: 1 TABLET
     Route: 048
  12. DUTASTERIDE [Concomitant]
     Active Substance: DUTASTERIDE
     Dosage: 1 TABLET
     Route: 048
  13. ENOXAPARIN [Concomitant]
     Active Substance: ENOXAPARIN
     Route: 058
  14. RAMIPRIL [Concomitant]
     Active Substance: RAMIPRIL
     Dosage: 1 TABLET
     Route: 048

REACTIONS (1)
  - Cardiac failure [Unknown]

NARRATIVE: CASE EVENT DATE: 20230816
